FAERS Safety Report 6056791-X (Version None)
Quarter: 2009Q1

REPORT INFORMATION
  Report Type: 
  Country: None (occurrence: None)
  Receive Date: 20090126
  Receipt Date: 20090107
  Transmission Date: 20090719
  Serious: Yes (Death)
  Sender: FDA-Public Use
  Company Number: B0553770A

PATIENT
  Age: 52 Year
  Sex: Male

DRUGS (8)
  1. TRIAMTERENE AND HYDROCHLOROTHIAZIDE [Suspect]
     Dosage: ORAL
     Route: 048
  2. VERAPAMIL [Suspect]
  3. GLIPIZIDE [Suspect]
     Dosage: ORAL
     Route: 048
  4. LITHIUM CARBONATE [Suspect]
     Dosage: ORAL
     Route: 048
  5. OLANZAPINE [Suspect]
     Dosage: ORAL
     Route: 048
  6. METFORMIN HCL [Suspect]
     Dosage: ORAL
     Route: 048
  7. LOVASTATIN (FORMULATION UNKNOWN) (LOVASTATIN) [Suspect]
     Dosage: ORAL
     Route: 048
  8. HYDROGEN PEROXIDE SOLUTION (FORMULATION UNKNOWN) (HYDROGEN PEROXIDE SO [Suspect]
     Dosage: ORAL
     Route: 048

REACTIONS (1)
  - COMPLETED SUICIDE [None]
